FAERS Safety Report 21230241 (Version 1)
Quarter: 2022Q3

REPORT INFORMATION
  Report Type: Spontaneous
  Country: US (occurrence: US)
  Receive Date: 20220818
  Receipt Date: 20220818
  Transmission Date: 20221027
  Serious: No
  Sender: FDA-Public Use
  Company Number: US-Vifor (International) Inc.-VIT-2022-05528

PATIENT
  Age: 25 Year
  Sex: Male

DRUGS (1)
  1. VELTASSA [Suspect]
     Active Substance: PATIROMER
     Indication: Hyperkalaemia
     Dosage: DISSOLVE CONTENT OF 2 PACKETS IN WATER AND DRINK FULL AMOUNT DAILY
     Route: 048
     Dates: start: 20170422

REACTIONS (1)
  - Haemoglobin abnormal [Not Recovered/Not Resolved]
